FAERS Safety Report 4831610-5 (Version None)
Quarter: 2005Q4

REPORT INFORMATION
  Report Type: 
  Country: None (occurrence: None)
  Receive Date: 20051116
  Receipt Date: 20051104
  Transmission Date: 20060501
  Serious: Yes (Other)
  Sender: FDA-Public Use
  Company Number: 2005151667

PATIENT
  Sex: Male
  Weight: 90.7194 kg

DRUGS (6)
  1. LIPITOR [Suspect]
     Indication: BLOOD CHOLESTEROL INCREASED
     Dosage: 1 IN 1 D ORAL
     Route: 048
     Dates: end: 20040201
  2. PRAVACHOL [Suspect]
     Indication: BLOOD CHOLESTEROL INCREASED
     Dosage: ORAL
     Route: 048
     Dates: start: 20040101, end: 20040101
  3. ZETIA [Suspect]
     Indication: BLOOD CHOLESTEROL INCREASED
     Dosage: ORAL
     Route: 048
  4. LASIX [Concomitant]
  5. TOPROL (METOPROLOL) [Concomitant]
  6. INSULIN [Concomitant]

REACTIONS (15)
  - ARTHRALGIA [None]
  - ASTHENIA [None]
  - BEDRIDDEN [None]
  - BLADDER DISORDER [None]
  - BLOOD TRIGLYCERIDES INCREASED [None]
  - JOINT SWELLING [None]
  - LIVER DISORDER [None]
  - MYALGIA [None]
  - PAIN [None]
  - PAIN IN EXTREMITY [None]
  - RENAL IMPAIRMENT [None]
  - REOCCLUSION [None]
  - SURGICAL PROCEDURE REPEATED [None]
  - TRANSIENT ISCHAEMIC ATTACK [None]
  - VENOUS OCCLUSION [None]
